FAERS Safety Report 25618589 (Version 3)
Quarter: 2025Q3

REPORT INFORMATION
  Report Type: Spontaneous
  Country: DO (occurrence: DO)
  Receive Date: 20250729
  Receipt Date: 20250915
  Transmission Date: 20251020
  Serious: No
  Sender: PFIZER
  Company Number: DO-PFIZER INC-PV202500086135

PATIENT
  Age: 10 Year
  Sex: Male

DRUGS (1)
  1. GENOTROPIN [Suspect]
     Active Substance: SOMATROPIN
     Dosage: 1.4 MG, 1X/DAY
     Dates: start: 202507

REACTIONS (1)
  - Device defective [Unknown]

NARRATIVE: CASE EVENT DATE: 20250714
